FAERS Safety Report 7575262-2 (Version None)
Quarter: 2011Q2

REPORT INFORMATION
  Report Type: 
  Country: None (occurrence: None)
  Receive Date: 20110627
  Receipt Date: 20110621
  Transmission Date: 20111010
  Serious: Yes (Death, Hospitalization)
  Sender: FDA-Public Use
  Company Number: US-ACTELION-A-US2011-47256

PATIENT

DRUGS (14)
  1. EPOPROSTENOL SODIUM [Suspect]
     Indication: PULMONARY ARTERIAL HYPERTENSION
     Dosage: 14 NG/KG, PER MIN
     Route: 042
     Dates: start: 20110131
  2. REVATIO [Concomitant]
  3. TAMSULOSIN HCL [Concomitant]
  4. POTASSIUM CHLORIDE [Concomitant]
  5. WARFARIN SODIUM [Concomitant]
  6. EPOPROSTENOL SODIUM [Suspect]
     Dosage: 28 NG/KG, PER MIN
     Route: 042
  7. FLUTICASONE PROPIONATE [Concomitant]
  8. PRIMIDONE [Concomitant]
  9. PREDNISONE [Concomitant]
  10. FUROSEMIDE [Concomitant]
  11. TIOTROPIUM [Concomitant]
  12. GLYBURIDE [Concomitant]
  13. SALMETEROL [Concomitant]
  14. SIMVASTATIN [Concomitant]

REACTIONS (29)
  - RIGHT VENTRICULAR FAILURE [None]
  - ATRIAL FLUTTER [None]
  - RESPIRATORY ARREST [None]
  - ORTHOPNOEA [None]
  - ENDOTRACHEAL INTUBATION [None]
  - PLEURAL EFFUSION [None]
  - FLUID OVERLOAD [None]
  - PULMONARY OEDEMA [None]
  - PAIN IN EXTREMITY [None]
  - ATRIAL FIBRILLATION [None]
  - DECREASED APPETITE [None]
  - HYPOTENSION [None]
  - METABOLIC ACIDOSIS [None]
  - PULMONARY ARTERIAL HYPERTENSION [None]
  - HYPOXIA [None]
  - GENERALISED OEDEMA [None]
  - LEUKOCYTOSIS [None]
  - RESPIRATORY FAILURE [None]
  - COAGULOPATHY [None]
  - CARDIOVERSION [None]
  - CONDITION AGGRAVATED [None]
  - CARDIOGENIC SHOCK [None]
  - RENAL IMPAIRMENT [None]
  - SEPSIS [None]
  - URINARY TRACT INFECTION ENTEROCOCCAL [None]
  - HEPATIC FUNCTION ABNORMAL [None]
  - ASTHENIA [None]
  - DYSPNOEA [None]
  - HEPATIC CONGESTION [None]
